FAERS Safety Report 24715327 (Version 1)
Quarter: 2024Q4

REPORT INFORMATION
  Report Type: Report from Study
  Country: CA (occurrence: CA)
  Receive Date: 20241210
  Receipt Date: 20241210
  Transmission Date: 20250115
  Serious: Yes (Death)
  Sender: ABBVIE
  Company Number: CA-ABBVIE-6037589

PATIENT
  Age: 91 Year
  Sex: Female

DRUGS (1)
  1. LEUPROLIDE ACETATE [Suspect]
     Active Substance: LEUPROLIDE ACETATE
     Indication: Prostate cancer
     Dosage: 30 MG
     Route: 030
     Dates: start: 20200214, end: 20240821

REACTIONS (1)
  - Death [Fatal]

NARRATIVE: CASE EVENT DATE: 20240920
